FAERS Safety Report 5655826-3 (Version None)
Quarter: 2008Q1

REPORT INFORMATION
  Report Type: 
  Country: None (occurrence: None)
  Receive Date: 20080307
  Receipt Date: 20080226
  Transmission Date: 20080703
  Serious: Yes (Other)
  Sender: FDA-Public Use
  Company Number: US-PFIZER INC-2008010250

PATIENT
  Age: 55 Year
  Sex: Female
  Weight: 72.6 kg

DRUGS (6)
  1. LYRICA [Suspect]
     Indication: LUMBAR RADICULOPATHY
     Dates: start: 20071023, end: 20080131
  2. EFFEXOR XR [Concomitant]
  3. BUPROPION HCL [Concomitant]
  4. CYTOMEL [Concomitant]
  5. SYNTHROID [Concomitant]
  6. NEXIUM [Concomitant]

REACTIONS (3)
  - ABDOMINAL RIGIDITY [None]
  - FEELING ABNORMAL [None]
  - HYPERREFLEXIA [None]
